FAERS Safety Report 21620746 (Version 1)
Quarter: 2022Q4

REPORT INFORMATION
  Report Type: Spontaneous
  Country: US (occurrence: None)
  Receive Date: 20221118
  Receipt Date: 20221118
  Transmission Date: 20230113
  Serious: Yes (Hospitalization)
  Sender: FDA-Public Use
  Company Number: None

PATIENT
  Sex: Male
  Weight: 61 kg

DRUGS (2)
  1. CYTARABINE [Suspect]
     Active Substance: CYTARABINE
     Dates: end: 20210610
  2. DAUNORUBICIN [Suspect]
     Active Substance: DAUNORUBICIN
     Dates: end: 20210605

REACTIONS (7)
  - Infusion site pain [None]
  - Leptotrichia infection [None]
  - Sputum culture positive [None]
  - Gram stain positive [None]
  - Lung opacity [None]
  - Fungal infection [None]
  - Bacteraemia [None]

NARRATIVE: CASE EVENT DATE: 20210625
